FAERS Safety Report 6013528-8 (Version None)
Quarter: 2008Q4

REPORT INFORMATION
  Report Type: 
  Country: None (occurrence: None)
  Receive Date: 20081219
  Receipt Date: 20081210
  Transmission Date: 20090506
  Serious: Yes (Hospitalization)
  Sender: FDA-Public Use
  Company Number: PHHY2008JP31625

PATIENT
  Age: 51 Year
  Sex: Female

DRUGS (3)
  1. GLEEVEC [Suspect]
     Indication: GASTROINTESTINAL STROMAL TUMOUR
     Dosage: 400 MG / DAILY
     Route: 048
     Dates: start: 20041101
  2. GLEEVEC [Suspect]
     Dosage: 200 MG / DAILY
     Route: 048
  3. GLEEVEC [Suspect]
     Dosage: 400 MG / DAILY
     Route: 048

REACTIONS (7)
  - ANAEMIA [None]
  - BREAST CANCER [None]
  - DRUG ERUPTION [None]
  - HYPOPROTEINAEMIA [None]
  - MALIGNANT NEOPLASM PROGRESSION [None]
  - MALIGNANT TUMOUR EXCISION [None]
  - MASTECTOMY [None]
